FAERS Safety Report 4569546-X (Version None)
Quarter: 2005Q1

REPORT INFORMATION
  Report Type: 
  Country: None (occurrence: None)
  Receive Date: 20050201
  Receipt Date: 20050119
  Transmission Date: 20050727
  Serious: Yes (Hospitalization, Other)
  Sender: FDA-Public Use
  Company Number: DEU-2005-0001242

PATIENT
  Sex: Female

DRUGS (8)
  1. OXYCODONE HCL [Suspect]
     Indication: PAIN
     Dosage: 40 MG, BID, ORAL; 40 MG, TID, ORAL
     Route: 048
     Dates: start: 19960101
  2. ANTIBIOTICS  (ANTIBIOTICS) [Suspect]
     Indication: INFECTION
     Dosage: ORAL
     Route: 048
  3. THEOPHYLLINE [Concomitant]
  4. ANTI-ASTHMATICS [Concomitant]
  5. SEREVENT [Concomitant]
  6. ISOPTIN [Concomitant]
  7. KLIOGEST   NOVO NORDISK  (ESTRADIOL, NORETHISTERONE ACETATE) [Concomitant]
  8. KATADOLON (FLUPIRTINE MALEATE) [Concomitant]

REACTIONS (8)
  - BRONCHITIS ACUTE [None]
  - CHRONIC OBSTRUCTIVE AIRWAYS DISEASE EXACERBATED [None]
  - CLOSTRIDIUM COLITIS [None]
  - CONFUSIONAL STATE [None]
  - DRUG INTERACTION [None]
  - DYSPNOEA [None]
  - KIDNEY INFECTION [None]
  - RENAL FAILURE ACUTE [None]
